FAERS Safety Report 15971755 (Version 1)
Quarter: 2019Q1

REPORT INFORMATION
  Report Type: Spontaneous
  Country: US (occurrence: US)
  Receive Date: 20190215
  Receipt Date: 20190215
  Transmission Date: 20190418
  Serious: No
  Sender: FDA-Public Use
  Company Number: US-AMAG PHARMACEUTICALS, INC.-AMAG201900257

PATIENT
  Age: 30 Year
  Sex: Female
  Weight: 51.7 kg

DRUGS (3)
  1. MAKENA [Suspect]
     Active Substance: HYDROXYPROGESTERONE CAPROATE
     Indication: PREMATURE LABOUR
     Dosage: 250 MG/ML, WEEKLY
     Route: 058
     Dates: start: 20181105
  2. TYLENOL ARTHRITIS PAIN [Concomitant]
     Active Substance: ACETAMINOPHEN
     Indication: PAIN
     Dosage: 650 MG, Q4H PRN
     Route: 048
  3. FLINTSTONES [Concomitant]
     Indication: VITAMIN SUPPLEMENTATION
     Dosage: 1 GUMMY, QD
     Route: 048

REACTIONS (2)
  - Product dose omission [Unknown]
  - Product administration error [Unknown]

NARRATIVE: CASE EVENT DATE: 20190114
